FAERS Safety Report 13150083 (Version 4)
Quarter: 2018Q1

REPORT INFORMATION
  Report Type: Report from Study
  Country: US (occurrence: US)
  Receive Date: 20170124
  Receipt Date: 20180108
  Transmission Date: 20180508
  Serious: No
  Sender: FDA-Public Use
  Company Number: US-AMGEN-USASL2017003285

PATIENT
  Age: 62 Year
  Sex: Male
  Weight: 63.49 kg

DRUGS (1)
  1. REPATHA [Suspect]
     Active Substance: EVOLOCUMAB
     Indication: BLOOD CHOLESTEROL INCREASED
     Dosage: 420 MG/3.5 ML, QMO
     Route: 058
     Dates: start: 20170105

REACTIONS (5)
  - Abdominal discomfort [Unknown]
  - Injection site urticaria [Unknown]
  - Rhinorrhoea [Unknown]
  - Myalgia [Recovered/Resolved]
  - Fatigue [Unknown]

NARRATIVE: CASE EVENT DATE: 2017
